FAERS Safety Report 4590329-9 (Version None)
Quarter: 2005Q1

REPORT INFORMATION
  Report Type: 
  Country: None (occurrence: None)
  Receive Date: 20050217
  Receipt Date: 20050209
  Transmission Date: 20050727
  Serious: Yes (Hospitalization)
  Sender: FDA-Public Use
  Company Number: 210958

PATIENT
  Age: 61 Year
  Sex: Male

DRUGS (13)
  1. RITUXAN [Suspect]
     Indication: DRUG USE FOR UNKNOWN INDICATION
     Dosage: 671.1 MG, INTRAVENOUS
     Route: 042
     Dates: start: 20041102, end: 20041102
  2. MESNA [Suspect]
     Indication: DRUG USE FOR UNKNOWN INDICATION
     Dosage: 1342 MG, INTRAVENOUS
     Route: 042
     Dates: start: 20041030, end: 20041030
  3. ELDISINE [Suspect]
     Indication: DRUG USE FOR UNKNOWN INDICATION
     Dosage: 537 MG
     Dates: start: 20041030, end: 20041030
  4. CYCLOPHOSPHAMIDE [Suspect]
     Indication: DRUG USE FOR UNKNOWN INDICATION
     Dosage: 1342 MG, INTRAVENOUS
     Route: 042
     Dates: start: 20041030, end: 20041030
  5. ADRIBLASTINE        (DOXORUBICIN, DOXORUBICIN HYDROCHLORIDE) [Suspect]
     Indication: DRUG USE FOR UNKNOWN INDICATION
     Dosage: 89.5 MG, INTRAVENOUS
     Route: 042
     Dates: start: 20041030, end: 20041030
  6. KYTRIL [Concomitant]
  7. SOLI-MEDROL      (METHYLPREDNISOLONE SODIUM SUCCINATE) [Concomitant]
  8. POLARAMINE [Concomitant]
  9. ACETAMINOPHEN [Concomitant]
  10. DAFALGAN (ACETAMINOPHEN) [Concomitant]
  11. VALACYCLOVIR HCL [Concomitant]
  12. OMEPRAZOLE [Concomitant]
  13. LASILIX (FUROSEMIDE) [Concomitant]

REACTIONS (1)
  - NEUTROPENIA [None]
